FAERS Safety Report 8851073 (Version 2)
Quarter: 2012Q4

REPORT INFORMATION
  Report Type: 
  Country: BR (occurrence: BR)
  Receive Date: 20121019
  Receipt Date: 20121101
  Transmission Date: 20130627
  Serious: Yes (Death, Hospitalization, Other)
  Sender: FDA-Public Use
  Company Number: BR-PFIZER INC-2012259254

PATIENT
  Age: 72 Year
  Sex: Male
  Weight: 50 kg

DRUGS (7)
  1. SUTENT [Suspect]
     Indication: RENAL CELL CARCINOMA
     Dosage: 50 mg, cyclic, 4 weeks on and 2 weeks off
     Route: 048
     Dates: start: 20120911, end: 20121004
  2. SUTENT [Suspect]
     Indication: RENAL CANCER
  3. DIMORF [Concomitant]
     Indication: CANCER PAIN
     Dosage: 2 mg, every 12 hours
  4. GABAPENTIN [Concomitant]
     Indication: CANCER PAIN
     Dosage: 40 mg, every 8 hours
     Dates: end: 2012
  5. GABAPENTIN [Concomitant]
     Dosage: 1 tablet of an unspecified dose, 1x/day (in the morning)
     Dates: start: 2012
  6. OMEPRAZOLE [Concomitant]
     Dosage: unspecified dose, 1x/day (in the morning)
  7. PARACETAMOL [Concomitant]
     Indication: TENDONITIS
     Dosage: UNK
     Dates: start: 201201

REACTIONS (14)
  - Respiratory failure [Fatal]
  - Febrile neutropenia [Fatal]
  - Disease progression [Fatal]
  - Renal cancer metastatic [Fatal]
  - Asthenia [Unknown]
  - Decreased appetite [Unknown]
  - Eating disorder [Unknown]
  - Aphonia [Unknown]
  - Aphthous stomatitis [Unknown]
  - Mouth injury [Unknown]
  - Glossodynia [Unknown]
  - Condition aggravated [Unknown]
  - Dry mouth [Unknown]
  - Dysphonia [Unknown]
